FAERS Safety Report 24458515 (Version 1)
Quarter: 2024Q4

REPORT INFORMATION
  Report Type: Report from Study
  Country: US (occurrence: US)
  Receive Date: 20241018
  Receipt Date: 20241018
  Transmission Date: 20250114
  Serious: No
  Sender: ROCHE
  Company Number: US-ROCHE-3519573

PATIENT
  Age: 61 Year
  Sex: Female
  Weight: 43.54 kg

DRUGS (2)
  1. RITUXAN [Suspect]
     Active Substance: RITUXIMAB
     Indication: Immune thrombocytopenia
     Dosage: 529 MG AT 375 MG/,M2 FOR EVERY DAY, 500 MG, EVERY 15 MIN, 100 MG/HR CYCLE 1 DAY 1.
     Route: 042
     Dates: start: 20240229
  2. RITUXAN [Suspect]
     Active Substance: RITUXIMAB
     Indication: Gastric cancer

REACTIONS (2)
  - Off label use [Unknown]
  - No adverse event [Unknown]
